FAERS Safety Report 5018688-3 (Version None)
Quarter: 2006Q2

REPORT INFORMATION
  Report Type: 
  Country: None (occurrence: None)
  Receive Date: 20060605
  Receipt Date: 20060526
  Transmission Date: 20061013
  Serious: Yes (Death, Hospitalization)
  Sender: FDA-Public Use
  Company Number: GB-ABBOTT-06P-167-0334625-00

PATIENT
  Sex: Female
  Weight: 68 kg

DRUGS (5)
  1. HUMIRA [Suspect]
     Indication: RHEUMATOID ARTHRITIS
     Route: 058
     Dates: start: 20050715, end: 20060115
  2. BENDROFLUMETHIAZIDE [Concomitant]
     Indication: DRUG USE FOR UNKNOWN INDICATION
  3. FERROUS SULFATE TAB [Concomitant]
     Indication: DRUG USE FOR UNKNOWN INDICATION
  4. IRBESARTAN [Concomitant]
     Indication: DRUG USE FOR UNKNOWN INDICATION
  5. ROFECOXIB [Concomitant]
     Indication: DRUG USE FOR UNKNOWN INDICATION

REACTIONS (1)
  - BRAIN STEM SYNDROME [None]
